FAERS Safety Report 8427307-5 (Version None)
Quarter: 2012Q2

REPORT INFORMATION
  Report Type: 
  Country: None (occurrence: None)
  Receive Date: 20120601
  Receipt Date: 20120529
  Transmission Date: 20120825
  Serious: Yes (Hospitalization, Disabling, Other)
  Sender: FDA-Public Use
  Company Number: 2012SP005876

PATIENT
  Age: 19 Year
  Sex: Female
  Weight: 88.4514 kg

DRUGS (1)
  1. NUVARING [Suspect]
     Indication: CONTRACEPTION
     Dates: start: 20080401, end: 20090201

REACTIONS (11)
  - CARDIAC DISORDER [None]
  - MIGRAINE [None]
  - PULMONARY EMBOLISM [None]
  - HEART RATE IRREGULAR [None]
  - ARTHRALGIA [None]
  - IMPAIRED WORK ABILITY [None]
  - SYSTEMIC LUPUS ERYTHEMATOSUS [None]
  - AUTOIMMUNE DISORDER [None]
  - JOINT SWELLING [None]
  - ANGINA PECTORIS [None]
  - INFECTION [None]
